FAERS Safety Report 13143968 (Version 2)
Quarter: 2017Q1

REPORT INFORMATION
  Report Type: Report from Study
  Country: DE (occurrence: DE)
  Receive Date: 20170124
  Receipt Date: 20170206
  Transmission Date: 20170428
  Serious: Yes (Hospitalization, Other)
  Sender: FDA-Public Use
  Company Number: DE-ROCHE-1717451

PATIENT
  Age: 91 Year
  Sex: Female
  Weight: 70 kg

DRUGS (11)
  1. RANIBIZUMAB [Suspect]
     Active Substance: RANIBIZUMAB
     Dosage: 0.5 MG, 1X (PRE-FILLED SYRINGE)
     Route: 050
     Dates: start: 20150820
  2. RANIBIZUMAB [Suspect]
     Active Substance: RANIBIZUMAB
     Dosage: 0.5 MG, 1X (PRE-FILLED SYRINGE)
     Route: 050
     Dates: start: 20160204, end: 20160204
  3. FALITHROM [Concomitant]
     Active Substance: PHENPROCOUMON
     Indication: PRODUCT USED FOR UNKNOWN INDICATION
     Route: 065
  4. RANIBIZUMAB [Suspect]
     Active Substance: RANIBIZUMAB
     Dosage: 0.5 MG, 1X (PRE-FILLED SYRINGE)
     Route: 065
     Dates: start: 201505
  5. RANIBIZUMAB [Suspect]
     Active Substance: RANIBIZUMAB
     Dosage: 0.5 MG, 1X (PRE-FILLED SYRINGE)
     Route: 050
     Dates: start: 20151203
  6. RANIBIZUMAB [Suspect]
     Active Substance: RANIBIZUMAB
     Dosage: 0.5 MG, 1X (PRE-FILLED SYRINGE)
     Route: 050
     Dates: start: 20150630
  7. RANIBIZUMAB [Suspect]
     Active Substance: RANIBIZUMAB
     Route: 050
     Dates: start: 20160711, end: 20160711
  8. RANIBIZUMAB [Suspect]
     Active Substance: RANIBIZUMAB
     Indication: NEOVASCULAR AGE-RELATED MACULAR DEGENERATION
     Dosage: 0.5 MG, 1X (VIAL)
     Route: 065
     Dates: start: 20150212
  9. RANIBIZUMAB [Suspect]
     Active Substance: RANIBIZUMAB
     Dosage: 0.5 MG, 1X (PRE-FILLED SYRINGE)
     Route: 050
     Dates: start: 20151008
  10. RANIBIZUMAB [Suspect]
     Active Substance: RANIBIZUMAB
     Route: 050
     Dates: start: 20160421
  11. RANIBIZUMAB [Suspect]
     Active Substance: RANIBIZUMAB
     Route: 050
     Dates: start: 20161027, end: 20161027

REACTIONS (3)
  - Detachment of retinal pigment epithelium [Recovering/Resolving]
  - Endophthalmitis [Unknown]
  - Iridocyclitis [Recovering/Resolving]

NARRATIVE: CASE EVENT DATE: 20160204
